FAERS Safety Report 9433806 (Version 1)
Quarter: 2013Q3

REPORT INFORMATION
  Report Type: Spontaneous
  Country: JP (occurrence: JP)
  Receive Date: 20130731
  Receipt Date: 20130731
  Transmission Date: 20140515
  Serious: Yes (Other)
  Sender: FDA-Public Use
  Company Number: PHHY2013JP081220

PATIENT
  Sex: Female

DRUGS (3)
  1. DIOVAN [Suspect]
     Indication: HYPERTENSION
     Dosage: 1.5 DF, DAILY  (120MG)
     Route: 048
  2. DIOVAN [Suspect]
     Dosage: 2 DF, DAILY (160 MG)
     Route: 048
  3. ADALAT [Concomitant]
     Dosage: IN THE MORNING AND IN THE EVENING
     Route: 048

REACTIONS (4)
  - Loss of consciousness [Not Recovered/Not Resolved]
  - Tongue paralysis [Not Recovered/Not Resolved]
  - Dysgeusia [Not Recovered/Not Resolved]
  - Wrong technique in drug usage process [Unknown]
